FAERS Safety Report 9791186 (Version 1)
Quarter: 2013Q4

REPORT INFORMATION
  Report Type: Spontaneous
  Country: US (occurrence: US)
  Receive Date: 20131231
  Receipt Date: 20131231
  Transmission Date: 20140711
  Serious: Yes (Life-Threatening, Hospitalization, Other)
  Sender: FDA-Public Use
  Company Number: US-RB-061954-13

PATIENT
  Age: 50 Year
  Sex: Female

DRUGS (5)
  1. SUBOXONE TABLET [Suspect]
     Indication: DRUG DEPENDENCE
     Dosage: PRESCRIBED 24 MG/DAILY, USUALLY TOOK 8 MG/DAILY.
     Route: 060
  2. SUBOXONE FILM [Suspect]
     Indication: DRUG DEPENDENCE
     Dosage: SUBOXONE FILM; PRESCRIBED 24 MG/DAILY, USUALLY TOOK 8 MG/DAILY
     Route: 060
     Dates: end: 20131031
  3. NICOTINE [Suspect]
     Indication: NICOTINE DEPENDENCE
     Dosage: 1.5 PACK OF CIGARETTES A DAY
     Route: 055
  4. CYMBALTA [Concomitant]
     Indication: DEPRESSION
     Route: 048
  5. ANTIHYPERTENSIVE MEDICATION [Concomitant]
     Indication: HYPERTENSION
     Dosage: DOSING DETAILS UNKNOWN
     Route: 048

REACTIONS (3)
  - Lung neoplasm [Not Recovered/Not Resolved]
  - Dyspnoea [Recovered/Resolved]
  - Intentional underdose [Recovered/Resolved]
